FAERS Safety Report 4553036-4 (Version None)
Quarter: 2005Q1

REPORT INFORMATION
  Report Type: 
  Country: None (occurrence: None)
  Receive Date: 20050113
  Receipt Date: 20050105
  Transmission Date: 20050727
  Serious: Yes (Other)
  Sender: FDA-Public Use
  Company Number: 2005007750

PATIENT
  Sex: Male
  Weight: 70 kg

DRUGS (15)
  1. LINEZOLID TABLET (LINEZOLID) [Suspect]
     Indication: ENTEROCOCCAL INFECTION
     Dosage: 1200 MG (600 MG, INTERVAL:EVERY DAY), ORAL
     Route: 048
     Dates: start: 20041126, end: 20041130
  2. MINOXIDIL [Concomitant]
  3. ASPIRIN [Concomitant]
  4. ATENOLOL [Concomitant]
  5. ALFACALCIDOL (ALFACALCIDOL) [Concomitant]
  6. CALCIUM CARBONATE (CALCIUM CARBONATE) [Concomitant]
  7. RAMIPRIL [Concomitant]
  8. FUROSEMIDE (FUROSEMIDE) [Concomitant]
  9. SIMVASTATIN [Concomitant]
  10. ALUMINIUM HYDROXIDE GEL, DRIED (ALUMINIUM HYDROXI GEL, DRIED) [Concomitant]
  11. LANSOPRAZOLE [Concomitant]
  12. ACETAMINOPHEN [Concomitant]
  13. HEPARIN [Concomitant]
  14. NIFEDIPINE [Concomitant]
  15. ERYTHROPOIETIN (ERYTHROPOIETIN) [Concomitant]

REACTIONS (4)
  - BLOOD CREATINE ABNORMAL [None]
  - ORAL MUCOSAL BLISTERING [None]
  - STOMATITIS [None]
  - TONGUE BLISTERING [None]
